FAERS Safety Report 17786022 (Version 2)
Quarter: 2020Q3

REPORT INFORMATION
  Report Type: Spontaneous
  Country: US (occurrence: US)
  Receive Date: 20200513
  Receipt Date: 20200909
  Transmission Date: 20201102
  Serious: No
  Sender: FDA-Public Use
  Company Number: US-009507513-2005USA002987

PATIENT
  Sex: Female

DRUGS (1)
  1. NEXPLANON [Suspect]
     Active Substance: ETONOGESTREL
     Indication: CONTRACEPTION
     Dosage: 1 ROD (DOSE REPORTED AS 68 MILLIGRAM), ONE TIME PLACEMENT
     Route: 059
     Dates: start: 20190808, end: 20200506

REACTIONS (2)
  - Abdominal distension [Unknown]
  - Metrorrhagia [Unknown]
